FAERS Safety Report 22963684 (Version 3)
Quarter: 2023Q4

REPORT INFORMATION
  Report Type: Report from Study
  Country: JP (occurrence: JP)
  Receive Date: 20230921
  Receipt Date: 20231008
  Transmission Date: 20240110
  Serious: Yes (Death)
  Sender: FDA-Public Use
  Company Number: JP-ABBVIE-19K-087-2903218-00

PATIENT
  Age: 77 Year
  Sex: Male
  Weight: 63 kg

DRUGS (7)
  1. CARBIDOPA\LEVODOPA [Suspect]
     Active Substance: CARBIDOPA\LEVODOPA
     Indication: Parkinson^s disease
     Dosage: MD: 11 ML?CD: 2.7 ML/HR ? 16 HRS?ED: 1 ML/UNIT ? 1 TIME
     Route: 050
     Dates: start: 20171218, end: 20190131
  2. CARBIDOPA\LEVODOPA [Suspect]
     Active Substance: CARBIDOPA\LEVODOPA
     Dosage: MD: 11.5 ML?CD: 3.0 ML/HR X 16 HRS?ED: 1 ML/UNIT X 2 TIMES
     Route: 050
     Dates: start: 20190131
  3. ROTIGOTINE [Concomitant]
     Active Substance: ROTIGOTINE
     Indication: Parkinson^s disease
     Route: 050
  4. DONEPEZIL HYDROCHLORIDE [Concomitant]
     Active Substance: DONEPEZIL HYDROCHLORIDE
     Indication: Product used for unknown indication
     Route: 048
  5. DROXIDOPA [Concomitant]
     Active Substance: DROXIDOPA
     Indication: Product used for unknown indication
     Route: 048
  6. DULAGLUTIDE [Concomitant]
     Active Substance: DULAGLUTIDE
     Indication: Product used for unknown indication
     Route: 058
     Dates: end: 20181115
  7. FLAVOXATE HYDROCHLORIDE [Concomitant]
     Active Substance: FLAVOXATE HYDROCHLORIDE
     Indication: Product used for unknown indication
     Route: 048

REACTIONS (3)
  - Pneumonia [Fatal]
  - Dysphagia [Unknown]
  - Stoma site infection [Recovered/Resolved]

NARRATIVE: CASE EVENT DATE: 20181115
